FAERS Safety Report 16054059 (Version 3)
Quarter: 2019Q2

REPORT INFORMATION
  Report Type: Spontaneous
  Country: CA (occurrence: CA)
  Receive Date: 20190308
  Receipt Date: 20190628
  Transmission Date: 20190711
  Serious: Yes (Hospitalization)
  Sender: FDA-Public Use
  Company Number: CA-ASCEND THERAPEUTICS-2063778

PATIENT
  Age: 52 Year
  Sex: Female

DRUGS (12)
  1. LORATADINE. [Suspect]
     Active Substance: LORATADINE
     Route: 048
  2. BUDESONIDE. [Suspect]
     Active Substance: BUDESONIDE
  3. CRINONE [Suspect]
     Active Substance: PROGESTERONE
  4. PROMETRIUM [Suspect]
     Active Substance: PROGESTERONE
  5. BUDESONIDE. [Concomitant]
     Active Substance: BUDESONIDE
  6. LORATADINE. [Suspect]
     Active Substance: LORATADINE
     Route: 048
  7. GLICLAZIDE [Concomitant]
     Active Substance: GLICLAZIDE
  8. PRASTERONE (PRASTERONE)?PRODUCT USED FOR UNKNOWN INDICATION [Suspect]
     Active Substance: PRASTERONE
     Route: 067
  9. DEHYDROEPIANDROSTERONE (PRASTERONE)?PRODUCT USED FOR UNKNOWN INDICATIO [Suspect]
     Active Substance: PRASTERONE
     Route: 067
  10. BUDESONIDE. [Suspect]
     Active Substance: BUDESONIDE
  11. CLARITIN [Concomitant]
     Active Substance: LORATADINE
     Route: 048
  12. ESTROGEL [Suspect]
     Active Substance: ESTRADIOL
     Indication: PRODUCT USE IN UNAPPROVED INDICATION

REACTIONS (9)
  - Swelling face [Unknown]
  - Butterfly rash [Unknown]
  - Rash [Unknown]
  - Head discomfort [Unknown]
  - Photosensitivity reaction [Unknown]
  - Periorbital oedema [Unknown]
  - Feeling hot [Unknown]
  - Tinnitus [Unknown]
  - Cellulitis [Unknown]
